FAERS Safety Report 6522562-0 (Version None)
Quarter: 2009Q4

REPORT INFORMATION
  Report Type: 
  Country: None (occurrence: None)
  Receive Date: 20091230
  Receipt Date: 20091218
  Transmission Date: 20100525
  Serious: Yes (Life-Threatening, Hospitalization, Other)
  Sender: FDA-Public Use
  Company Number: NO-PFIZER INC-2007088894

PATIENT
  Sex: Male

DRUGS (8)
  1. LIPITOR [Suspect]
     Indication: HYPERCHOLESTEROLAEMIA
     Route: 048
     Dates: start: 20050101, end: 20070801
  2. RINEXIN [Interacting]
     Indication: SINUSITIS
     Dosage: 7-10 DAYS' COURSE AS NEEDED SINCE 2003
     Route: 048
     Dates: start: 20070701, end: 20070708
  3. COSYLAN [Concomitant]
     Indication: UPPER RESPIRATORY TRACT INFECTION
     Dosage: 5 ML AS NEEDED
     Route: 048
     Dates: end: 20070708
  4. PENICILLIN V POTASSIUM [Concomitant]
     Indication: UPPER RESPIRATORY TRACT INFECTION
     Route: 048
     Dates: start: 20070701, end: 20070708
  5. ACETAMINOPHEN [Concomitant]
     Dosage: 1 TABLET AS NEEDED
     Route: 048
  6. ACETAMINOPHEN [Concomitant]
     Dosage: 1 TABLET AS NEEDED
     Route: 048
  7. RHINOCORT [Concomitant]
     Indication: HYPERSENSITIVITY
  8. RHINOCORT [Concomitant]

REACTIONS (6)
  - COMPARTMENT SYNDROME [None]
  - DRUG INTERACTION [None]
  - HYPOCALCAEMIA [None]
  - MYALGIA [None]
  - RENAL FAILURE ACUTE [None]
  - RHABDOMYOLYSIS [None]
